FAERS Safety Report 16578051 (Version 1)
Quarter: 2019Q3

REPORT INFORMATION
  Report Type: Spontaneous
  Country: US (occurrence: US)
  Receive Date: 20190716
  Receipt Date: 20190716
  Transmission Date: 20191004
  Serious: No
  Sender: FDA-Public Use
  Company Number: US-PFIZER INC-2019295959

PATIENT
  Age: 62 Year
  Sex: Female

DRUGS (1)
  1. AMPICILLIN SODIUM. [Suspect]
     Active Substance: AMPICILLIN SODIUM
     Dosage: UNK

REACTIONS (5)
  - Lacrimation increased [Unknown]
  - Urticaria [Unknown]
  - Drug hypersensitivity [Unknown]
  - Agitation [Unknown]
  - Pruritus [Unknown]
